FAERS Safety Report 9951109 (Version 1)
Quarter: 2014Q1

REPORT INFORMATION
  Report Type: Report from Study
  Country: US (occurrence: US)
  Receive Date: 20140304
  Receipt Date: 20140304
  Transmission Date: 20141002
  Serious: No
  Sender: FDA-Public Use
  Company Number: US-ABBVIE-13P-163-1067399-00

PATIENT
  Age: 61 Year
  Sex: Male

DRUGS (4)
  1. HUMIRA [Suspect]
     Indication: RHEUMATOID ARTHRITIS
     Route: 058
     Dates: start: 201107, end: 20121224
  2. HUMIRA [Suspect]
     Dates: start: 20121224, end: 201302
  3. HUMIRA [Suspect]
     Dates: start: 201302, end: 20130314
  4. HUMIRA [Suspect]

REACTIONS (3)
  - Influenza [Unknown]
  - Pneumonia [Unknown]
  - Tooth infection [Not Recovered/Not Resolved]
